FAERS Safety Report 10791592 (Version 2)
Quarter: 2015Q3

REPORT INFORMATION
  Report Type: Spontaneous
  Country: US (occurrence: US)
  Receive Date: 20150213
  Receipt Date: 20150709
  Transmission Date: 20151125
  Serious: Yes (Other)
  Sender: FDA-Public Use
  Company Number: US-GLAXOSMITHKLINE-US2015016222

PATIENT
  Age: 22 Year
  Sex: Male
  Weight: 24.49 kg

DRUGS (3)
  1. KEPPRA [Concomitant]
     Active Substance: LEVETIRACETAM
  2. CYTRA-K [Concomitant]
     Active Substance: CITRIC ACID MONOHYDRATE\POTASSIUM CITRATE
  3. CEFTIN [Suspect]
     Active Substance: CEFUROXIME AXETIL
     Indication: ESCHERICHIA URINARY TRACT INFECTION
     Dosage: 5 ML, BID
     Route: 050
     Dates: start: 20150201

REACTIONS (5)
  - Fistula [Unknown]
  - Feeding tube complication [Recovered/Resolved]
  - Product preparation error [Recovered/Resolved]
  - Product formulation issue [Unknown]
  - Skin infection [Unknown]

NARRATIVE: CASE EVENT DATE: 20150201
